FAERS Safety Report 23946327 (Version 1)
Quarter: 2024Q2

REPORT INFORMATION
  Report Type: Spontaneous
  Country: CN (occurrence: CN)
  Receive Date: 20240606
  Receipt Date: 20240606
  Transmission Date: 20240715
  Serious: Yes (Other)
  Sender: FDA-Public Use
  Company Number: CN-PFIZER INC-PV202400073586

PATIENT
  Age: 70 Year
  Sex: Female

DRUGS (4)
  1. EPIRUBICIN HYDROCHLORIDE [Suspect]
     Active Substance: EPIRUBICIN HYDROCHLORIDE
     Indication: Neoplasm
     Dosage: 90 ML, 1X/DAY
     Route: 041
     Dates: start: 20240430, end: 20240430
  2. CYCLOPHOSPHAMIDE [Concomitant]
     Active Substance: CYCLOPHOSPHAMIDE
     Indication: Chemotherapy
     Dosage: 1 G
     Route: 041
     Dates: start: 20240430
  3. VINDESINE [Concomitant]
     Active Substance: VINDESINE
     Indication: Chemotherapy
     Dosage: 4 MG
     Route: 042
     Dates: start: 20240430
  4. PREDNISONE [Concomitant]
     Active Substance: PREDNISONE
     Indication: Chemotherapy
     Dosage: 100 MG
     Route: 048

REACTIONS (2)
  - Atrial fibrillation [Recovering/Resolving]
  - Supraventricular tachycardia [Recovered/Resolved]

NARRATIVE: CASE EVENT DATE: 20240430
